FAERS Safety Report 9384324 (Version 1)
Quarter: 2013Q3

REPORT INFORMATION
  Report Type: Spontaneous
  Country: FR (occurrence: FR)
  Receive Date: 20130705
  Receipt Date: 20130705
  Transmission Date: 20140515
  Serious: Yes (Other)
  Sender: FDA-Public Use
  Company Number: PHHY2013FR043978

PATIENT
  Age: 66 Year
  Sex: Female

DRUGS (1)
  1. RASILEZ [Suspect]
     Indication: HYPERTENSION
     Dosage: 1 DF (150MG), DAILY
     Route: 048
     Dates: start: 2011, end: 201303

REACTIONS (2)
  - Arthralgia [Recovering/Resolving]
  - Joint swelling [Recovered/Resolved]
